FAERS Safety Report 6165652-7 (Version None)
Quarter: 2009Q2

REPORT INFORMATION
  Report Type: 
  Country: None (occurrence: None)
  Receive Date: 20090423
  Receipt Date: 20090420
  Transmission Date: 20091009
  Serious: Yes (Death)
  Sender: FDA-Public Use
  Company Number: DE-SANOFI-SYNTHELABO-F04200900027

PATIENT
  Sex: Female

DRUGS (8)
  1. BEVACIZUMAB [Suspect]
     Indication: COLORECTAL CANCER METASTATIC
     Route: 041
  2. BEVACIZUMAB [Suspect]
     Indication: DISEASE PROGRESSION
     Route: 041
  3. FOLINIC ACID [Suspect]
     Indication: DISEASE PROGRESSION
     Route: 041
     Dates: start: 20061213, end: 20061213
  4. FOLINIC ACID [Suspect]
     Indication: COLORECTAL CANCER METASTATIC
     Route: 041
     Dates: start: 20061213, end: 20061213
  5. FLUOROURACIL [Suspect]
     Indication: COLORECTAL CANCER METASTATIC
     Route: 040
     Dates: start: 20061213, end: 20061213
  6. FLUOROURACIL [Suspect]
     Indication: DISEASE PROGRESSION
     Route: 040
     Dates: start: 20061213, end: 20061213
  7. OXALIPLATIN [Suspect]
     Indication: COLORECTAL CANCER METASTATIC
     Route: 041
     Dates: start: 20061213, end: 20061213
  8. OXALIPLATIN [Suspect]
     Indication: DISEASE PROGRESSION
     Route: 041
     Dates: start: 20061213, end: 20061213

REACTIONS (1)
  - DEATH [None]
